FAERS Safety Report 9656124 (Version 1)
Quarter: 2013Q4

REPORT INFORMATION
  Report Type: Spontaneous
  Country: FR (occurrence: FR)
  Receive Date: 20131030
  Receipt Date: 20131030
  Transmission Date: 20140711
  Serious: Yes (Other)
  Sender: FDA-Public Use
  Company Number: FR-JNJFOC-20131013798

PATIENT
  Age: 86 Year
  Sex: Male

DRUGS (3)
  1. RISPERDAL [Suspect]
     Indication: AGITATION
     Route: 048
     Dates: start: 20130926, end: 20130929
  2. PRADAXA [Concomitant]
     Route: 065
  3. BISOCE [Concomitant]
     Route: 065

REACTIONS (4)
  - Psychomotor skills impaired [Unknown]
  - Balance disorder [Unknown]
  - Disorientation [Unknown]
  - Urinary incontinence [Unknown]
